FAERS Safety Report 24044995 (Version 2)
Quarter: 2024Q3

REPORT INFORMATION
  Report Type: Spontaneous
  Country: JP (occurrence: JP)
  Receive Date: 20240703
  Receipt Date: 20240906
  Transmission Date: 20241017
  Serious: Yes (Hospitalization)
  Sender: MYLAN
  Company Number: JP-VIATRISJAPAN-2024M1058605AA

PATIENT
  Age: 45 Year
  Sex: Female

DRUGS (4)
  1. EPINEPHRINE [Suspect]
     Active Substance: EPINEPHRINE
     Indication: Anaphylactic shock
     Dosage: 0.3 MILLIGRAM
  2. EPINEPHRINE [Suspect]
     Active Substance: EPINEPHRINE
     Dosage: 0.3 MILLIGRAM
  3. FAMOTIDINE [Concomitant]
     Active Substance: FAMOTIDINE
     Indication: Anaphylaxis prophylaxis
     Dosage: 20 MILLIGRAM
     Route: 042
  4. CHLORPHENIRAMINE [Concomitant]
     Active Substance: CHLORPHENIRAMINE
     Indication: Anaphylaxis prophylaxis
     Dosage: 5 MILLIGRAM
     Route: 042

REACTIONS (1)
  - Kounis syndrome [Unknown]
